FAERS Safety Report 4554190-0 (Version None)
Quarter: 2005Q1

REPORT INFORMATION
  Report Type: 
  Country: None (occurrence: None)
  Receive Date: 20050118
  Receipt Date: 20050106
  Transmission Date: 20050727
  Serious: Yes (Other)
  Sender: FDA-Public Use
  Company Number: US-JNJFOC-20041106015

PATIENT
  Sex: Male
  Weight: 100.7 kg

DRUGS (5)
  1. REMICADE [Suspect]
     Route: 042
  2. REMICADE [Suspect]
     Indication: CROHN'S DISEASE
     Route: 042
  3. IMURAN [Concomitant]
     Indication: CROHN'S DISEASE
  4. COUMADIN [Concomitant]
     Indication: ATRIAL FIBRILLATION
  5. SULFASALAZINE [Concomitant]
     Indication: CROHN'S DISEASE
     Route: 049

REACTIONS (1)
  - SQUAMOUS CELL CARCINOMA OF SKIN [None]
